FAERS Safety Report 14438591 (Version 2)
Quarter: 2018Q1

REPORT INFORMATION
  Report Type: Spontaneous
  Country: HK (occurrence: HK)
  Receive Date: 20180125
  Receipt Date: 20180129
  Transmission Date: 20180509
  Serious: Yes (Death)
  Sender: FDA-Public Use
  Company Number: HK-ROCHE-2056123

PATIENT
  Age: 66 Year
  Sex: Female

DRUGS (1)
  1. ATEZOLIZUMAB. [Suspect]
     Active Substance: ATEZOLIZUMAB
     Indication: PRODUCT USED FOR UNKNOWN INDICATION
     Dosage: 3-4 CYCLES
     Route: 065

REACTIONS (6)
  - Procalcitonin increased [Fatal]
  - Thrombocytopenia [Fatal]
  - Sepsis [Fatal]
  - Swelling [Unknown]
  - Proteinuria [Unknown]
  - Renal impairment [Fatal]

NARRATIVE: CASE EVENT DATE: 20171204
